FAERS Safety Report 24986579 (Version 2)
Quarter: 2025Q1

REPORT INFORMATION
  Report Type: Spontaneous
  Country: AT (occurrence: AT)
  Receive Date: 20250219
  Receipt Date: 20250224
  Transmission Date: 20250409
  Serious: Yes (Other)
  Sender: NOVARTIS
  Company Number: AT-002147023-NVSC2025AT026355

PATIENT
  Age: 28 Year
  Sex: Female

DRUGS (1)
  1. GILENYA [Suspect]
     Active Substance: FINGOLIMOD HYDROCHLORIDE
     Indication: Multiple sclerosis
     Route: 065
     Dates: start: 2014, end: 2017

REACTIONS (3)
  - Multiple sclerosis relapse [Unknown]
  - Diplopia [Unknown]
  - Fatigue [Unknown]
